FAERS Safety Report 10785521 (Version 1)
Quarter: 2015Q1

REPORT INFORMATION
  Report Type: Spontaneous
  Country: FI (occurrence: None)
  Receive Date: 20150209
  Receipt Date: 20150209
  Transmission Date: 20150721
  Serious: No
  Sender: FDA-Public Use
  Company Number: FI2015GSK011921

PATIENT
  Sex: Female

DRUGS (4)
  1. OPAMOX (OXAZEPAM) [Concomitant]
  2. QUETIAPINE [Concomitant]
     Active Substance: QUETIAPINE
  3. TRAMADOL (TRAMADOL HYDROCHLORIDE) [Concomitant]
     Active Substance: TRAMADOL HYDROCHLORIDE
  4. SEROXAT [Suspect]
     Active Substance: PAROXETINE HYDROCHLORIDE
     Indication: DEPRESSION
     Route: 048
     Dates: start: 201410, end: 201501

REACTIONS (6)
  - Drug withdrawal syndrome [None]
  - Palpitations [None]
  - Nausea [None]
  - Orgasm abnormal [None]
  - Intentional self-injury [None]
  - Sleep disorder [None]

NARRATIVE: CASE EVENT DATE: 201501
